FAERS Safety Report 6644791-8 (Version None)
Quarter: 2010Q1

REPORT INFORMATION
  Report Type: 
  Country: None (occurrence: None)
  Receive Date: 20100322
  Receipt Date: 20100312
  Transmission Date: 20100710
  Serious: Yes (Other)
  Sender: FDA-Public Use
  Company Number: US-PFIZER INC-2010019672

PATIENT
  Sex: Female

DRUGS (2)
  1. TOVIAZ [Suspect]
     Dosage: UNK
  2. PREDNISONE [Suspect]
     Dosage: UNK

REACTIONS (6)
  - ARTHROPATHY [None]
  - CONSTIPATION [None]
  - EYE DISORDER [None]
  - FLATULENCE [None]
  - SKIN LACERATION [None]
  - WOUND HAEMORRHAGE [None]
